FAERS Safety Report 6310231-1 (Version None)
Quarter: 2009Q3

REPORT INFORMATION
  Report Type: 
  Country: None (occurrence: None)
  Receive Date: 20090811
  Receipt Date: 20090728
  Transmission Date: 20100115
  Serious: Yes (Hospitalization)
  Sender: FDA-Public Use
  Company Number: KV200801319

PATIENT
  Sex: Male

DRUGS (1)
  1. MORPHINE SULFATE [Suspect]
     Indication: CANCER PAIN
     Dosage: 120 MG, TID (2 PILLS TID), ORAL
     Route: 048
     Dates: start: 20080526, end: 20080601

REACTIONS (9)
  - ACTIVITIES OF DAILY LIVING IMPAIRED [None]
  - AMNESIA [None]
  - DYSARTHRIA [None]
  - DYSSTASIA [None]
  - GAIT DISTURBANCE [None]
  - HALLUCINATION, VISUAL [None]
  - PRODUCT QUALITY ISSUE [None]
  - SOMNOLENCE [None]
  - VOMITING [None]
